FAERS Safety Report 19195402 (Version 1)
Quarter: 2021Q2

REPORT INFORMATION
  Report Type: Spontaneous
  Country: US (occurrence: US)
  Receive Date: 20210429
  Receipt Date: 20210429
  Transmission Date: 20210717
  Serious: No
  Sender: FDA-Public Use
  Company Number: US-IPSEN BIOPHARMACEUTICALS, INC.-2021-10497

PATIENT
  Age: 41 Year
  Sex: Female

DRUGS (1)
  1. SOMATULINE DEPOT [Suspect]
     Active Substance: LANREOTIDE ACETATE
     Indication: NEUROENDOCRINE TUMOUR
     Dosage: 120 MG/0.5ML, 1 INJECTION
     Route: 058
     Dates: start: 2019

REACTIONS (4)
  - Abdominal pain upper [Recovered/Resolved]
  - Depressed mood [Unknown]
  - Abdominal pain upper [Unknown]
  - Gastrointestinal pain [Unknown]
